FAERS Safety Report 13229582 (Version 1)
Quarter: 2017Q1

REPORT INFORMATION
  Report Type: Spontaneous
  Country: US (occurrence: US)
  Receive Date: 20170213
  Receipt Date: 20170213
  Transmission Date: 20170428
  Serious: Yes (Hospitalization)
  Sender: FDA-Public Use
  Company Number: None

PATIENT
  Age: 65 Year
  Sex: Female

DRUGS (33)
  1. NUCALA [Suspect]
     Active Substance: MEPOLIZUMAB
     Indication: ASTHMA
     Dosage: 100MG VIAL EVERY 4 WEEKS SUBCUTANEOUSLY
     Route: 058
     Dates: start: 20161216
  2. ANTI-DIARRHEAL [Concomitant]
     Active Substance: LOPERAMIDE HYDROCHLORIDE
  3. IPRATROPIUM [Concomitant]
     Active Substance: IPRATROPIUM
  4. NAC [Concomitant]
  5. ROBITUSSIN (GUAIFENESIN) [Concomitant]
     Active Substance: GUAIFENESIN
  6. VESICARE [Concomitant]
     Active Substance: SOLIFENACIN SUCCINATE
  7. VITAMIN D3 [Concomitant]
     Active Substance: CHOLECALCIFEROL
  8. ANTIHISTAMINE [Concomitant]
     Active Substance: UNSPECIFIED INGREDIENT
  9. ALLERGY [Concomitant]
     Active Substance: UNSPECIFIED INGREDIENT
  10. DALIRESP [Concomitant]
     Active Substance: ROFLUMILAST
  11. SINGULAIR [Concomitant]
     Active Substance: MONTELUKAST SODIUM
  12. VENTOLIN [Concomitant]
     Active Substance: ALBUTEROL SULFATE
  13. RISPERDAL [Concomitant]
     Active Substance: RISPERIDONE
  14. TUMS ULTRA [Concomitant]
     Active Substance: CALCIUM CARBONATE
  15. VISINE [Concomitant]
     Active Substance: TETRAHYDROZOLINE HYDROCHLORIDE
  16. XANAX [Concomitant]
     Active Substance: ALPRAZOLAM
  17. ALPRAZOLAM. [Concomitant]
     Active Substance: ALPRAZOLAM
  18. CARISOPORDOL [Concomitant]
  19. IBUPROFEN. [Concomitant]
     Active Substance: IBUPROFEN
  20. NICOTINAMIDE [Concomitant]
     Active Substance: NIACINAMIDE
  21. PROBIOTIC [Concomitant]
     Active Substance: PROBIOTICS NOS
  22. QVAR [Concomitant]
     Active Substance: BECLOMETHASONE DIPROPIONATE
  23. SYNTHROID [Concomitant]
     Active Substance: LEVOTHYROXINE SODIUM
  24. CALCIUM [Concomitant]
     Active Substance: CALCIUM
  25. CITALOPRAM [Concomitant]
     Active Substance: CITALOPRAM HYDROBROMIDE
  26. COMBIVENT [Concomitant]
     Active Substance: ALBUTEROL SULFATE\IPRATROPIUM BROMIDE
  27. MULTIVITE [Concomitant]
     Active Substance: VITAMINS
  28. SINEMET [Concomitant]
     Active Substance: CARBIDOPA\LEVODOPA
  29. AZELASTINE [Concomitant]
     Active Substance: AZELASTINE
  30. IMODIUM A-D [Concomitant]
     Active Substance: LOPERAMIDE HYDROCHLORIDE
  31. BENZONATATE. [Concomitant]
     Active Substance: BENZONATATE
  32. MUCINEX [Concomitant]
     Active Substance: GUAIFENESIN
  33. PREDNISONE. [Concomitant]
     Active Substance: PREDNISONE

REACTIONS (2)
  - Fall [None]
  - Hip fracture [None]
